FAERS Safety Report 4311583-4 (Version None)
Quarter: 2004Q1

REPORT INFORMATION
  Report Type: 
  Country: None (occurrence: None)
  Receive Date: 20040303
  Receipt Date: 20040303
  Transmission Date: 20041129
  Serious: Yes (Death, Hospitalization)
  Sender: FDA-Public Use
  Company Number: None

PATIENT
  Age: 12 Year
  Sex: Female
  Weight: 30.391 kg

DRUGS (3)
  1. ZOLOFT [Suspect]
     Indication: ANXIETY
     Dosage: 1X PER DAY BREAKFAST ORAL
     Route: 048
     Dates: start: 20030201, end: 20040104
  2. VERSED [Concomitant]
  3. ATIVAN [Concomitant]

REACTIONS (12)
  - ACCIDENTAL EXPOSURE [None]
  - AGITATION [None]
  - BLOOD PRESSURE INCREASED [None]
  - FEELING JITTERY [None]
  - HALLUCINATION [None]
  - HALLUCINATION, AUDITORY [None]
  - HEART RATE INCREASED [None]
  - INSOMNIA [None]
  - MARKEDLY REDUCED DIETARY INTAKE [None]
  - PYREXIA [None]
  - SPEECH DISORDER [None]
  - VOMITING [None]
